FAERS Safety Report 9466127 (Version 2)
Quarter: 2013Q3

REPORT INFORMATION
  Report Type: Report from Study
  Country: CA (occurrence: CA)
  Receive Date: 20130820
  Receipt Date: 20130820
  Transmission Date: 20140515
  Serious: Yes (Other)
  Sender: FDA-Public Use
  Company Number: CA-JNJFOC-20130719148

PATIENT
  Age: 52 Year
  Sex: Female
  Weight: 82.8 kg

DRUGS (5)
  1. REMICADE [Suspect]
     Indication: CROHN^S DISEASE
     Route: 042
     Dates: start: 20111219
  2. CLARITIN [Concomitant]
     Route: 065
  3. IRON [Concomitant]
     Route: 065
  4. VITAMIN D [Concomitant]
     Route: 065
  5. CALCIUM [Concomitant]
     Route: 065

REACTIONS (5)
  - Acarodermatitis [Not Recovered/Not Resolved]
  - Pain [Recovered/Resolved]
  - Fall [Recovered/Resolved]
  - Joint injury [Recovered/Resolved]
  - Local swelling [Recovered/Resolved]
